FAERS Safety Report 9717317 (Version 1)
Quarter: 2013Q4

REPORT INFORMATION
  Report Type: Spontaneous
  Country: GB (occurrence: GB)
  Receive Date: 20131127
  Receipt Date: 20131127
  Transmission Date: 20140711
  Serious: Yes (Other)
  Sender: FDA-Public Use
  Company Number: GB-ACTAVISPR-2013-21524

PATIENT
  Sex: Female

DRUGS (2)
  1. MINOCYCLINE (UNKNOWN) [Suspect]
     Indication: ACNE
     Dosage: 50 MG, DAILY
     Route: 048
     Dates: start: 201201, end: 201204
  2. ANTIDEPRESSANTS [Concomitant]
     Indication: PRODUCT USED FOR UNKNOWN INDICATION
     Dosage: UNK
     Route: 065

REACTIONS (3)
  - Benign intracranial hypertension [Not Recovered/Not Resolved]
  - Visual field defect [Not Recovered/Not Resolved]
  - Hypermetropia [Not Recovered/Not Resolved]
